FAERS Safety Report 4824035-X (Version None)
Quarter: 2005Q4

REPORT INFORMATION
  Report Type: 
  Country: None (occurrence: None)
  Receive Date: 20051109
  Receipt Date: 20051104
  Transmission Date: 20060501
  Serious: Yes (Death, Hospitalization)
  Sender: FDA-Public Use
  Company Number: 2005UW16799

PATIENT
  Sex: Male

DRUGS (1)
  1. SEROQUEL [Suspect]

REACTIONS (3)
  - DEATH [None]
  - DEHYDRATION [None]
  - PAIN [None]
